FAERS Safety Report 10227888 (Version 2)
Quarter: 2014Q3

REPORT INFORMATION
  Report Type: Spontaneous
  Country: US (occurrence: US)
  Receive Date: 20140610
  Receipt Date: 20140718
  Transmission Date: 20150326
  Serious: Yes (Other)
  Sender: FDA-Public Use
  Company Number: US-009507513-1406USA003637

PATIENT
  Age: 34 Year
  Sex: Female
  Weight: 72.56 kg

DRUGS (4)
  1. NUVARING [Suspect]
     Active Substance: ETHINYL ESTRADIOL\ETONOGESTREL
     Indication: CONTRACEPTION
     Dosage: UNK
     Route: 067
     Dates: start: 20130916
  2. TYLENOL [Concomitant]
     Active Substance: ACETAMINOPHEN
     Dosage: UNK, PRN
  3. METAMUCIL [Concomitant]
     Active Substance: PLANTAGO SEED
     Dosage: UNK, PRN
  4. NUVARING [Suspect]
     Active Substance: ETHINYL ESTRADIOL\ETONOGESTREL
     Dosage: LAST RING
     Route: 067
     Dates: start: 201403, end: 20140323

REACTIONS (4)
  - Unintended pregnancy [Recovered/Resolved]
  - Dyspnoea [Unknown]
  - Abortion induced [Unknown]
  - Complication of pregnancy [Recovered/Resolved]

NARRATIVE: CASE EVENT DATE: 201403
